FAERS Safety Report 8715617 (Version 2)
Quarter: 2015Q2

REPORT INFORMATION
  Report Type: Report from Study
  Country: US (occurrence: US)
  Receive Date: 20120809
  Receipt Date: 20150416
  Transmission Date: 20150821
  Serious: Yes (Other)
  Sender: FDA-Public Use
  Company Number: US-ROCHE-1097652

PATIENT
  Sex: Male
  Weight: 56.36 kg

DRUGS (13)
  1. XOLAIR [Suspect]
     Active Substance: OMALIZUMAB
     Indication: ASTHMA
     Route: 042
     Dates: start: 2004
  2. PREDNISONE. [Concomitant]
     Active Substance: PREDNISONE
     Route: 065
  3. ASTELIN (UNITED STATES) [Concomitant]
     Route: 065
  4. ADVAIR HFA [Concomitant]
     Active Substance: FLUTICASONE PROPIONATE\SALMETEROL XINAFOATE
     Dosage: 250-50 UG
     Route: 065
  5. DALLERGY [Suspect]
     Active Substance: CHLORCYCLIZINE HYDROCHLORIDE\PHENYLEPHRINE\PHENYLEPHRINE HYDROCHLORIDE
     Indication: PRODUCT USED FOR UNKNOWN INDICATION
     Route: 065
  6. XOLAIR [Suspect]
     Active Substance: OMALIZUMAB
     Indication: RHINITIS ALLERGIC
  7. PROTONIX (UNITED STATES) [Concomitant]
     Route: 065
  8. FLONASE (UNITED STATES) [Concomitant]
     Route: 065
  9. XOPENEX [Concomitant]
     Active Substance: LEVALBUTEROL HYDROCHLORIDE
     Route: 065
  10. THEOPHYLLINE [Concomitant]
     Active Substance: THEOPHYLLINE ANHYDROUS
     Route: 065
  11. SINGULAIR [Concomitant]
     Active Substance: MONTELUKAST SODIUM
     Route: 065
  12. PULMICORT RESPULES [Concomitant]
     Active Substance: BUDESONIDE
     Route: 065
  13. CEFACLOR. [Concomitant]
     Active Substance: CEFACLOR

REACTIONS (9)
  - Chest pain [Unknown]
  - Cough [Unknown]
  - Nausea [Unknown]
  - Erythema [Unknown]
  - Dyspnoea [Unknown]
  - Skin reaction [Unknown]
  - Asthma [Unknown]
  - Productive cough [Unknown]
  - Sinusitis [Unknown]
